FAERS Safety Report 5963206-6 (Version None)
Quarter: 2008Q4

REPORT INFORMATION
  Report Type: 
  Country: None (occurrence: None)
  Receive Date: 20081124
  Receipt Date: 20081118
  Transmission Date: 20090506
  Serious: Yes (Hospitalization)
  Sender: FDA-Public Use
  Company Number: US-BAYER-200814332BCC

PATIENT
  Age: 78 Year
  Sex: Female
  Weight: 79 kg

DRUGS (11)
  1. MILK OF MAGNESIA TAB [Suspect]
     Indication: CONSTIPATION
     Dates: start: 20081027
  2. MILK OF MAGNESIA TAB [Suspect]
     Dates: start: 20030101, end: 20080101
  3. MILK OF MAGNESIA TAB [Suspect]
     Dates: start: 20030401
  4. LIPITOR [Concomitant]
  5. SYNTHROID [Concomitant]
  6. LOTREL [Concomitant]
  7. ASPIRIN [Concomitant]
  8. CALCIUM [Concomitant]
  9. OMEPRAZOLE [Concomitant]
  10. NADOLOL [Concomitant]
  11. ALDOMET [Concomitant]

REACTIONS (7)
  - ANAPHYLACTIC REACTION [None]
  - DYSPHONIA [None]
  - DYSPNOEA [None]
  - EYE PRURITUS [None]
  - HYPERSENSITIVITY [None]
  - SWELLING FACE [None]
  - SWOLLEN TONGUE [None]
